FAERS Safety Report 9380453 (Version 2)
Quarter: 2013Q3

REPORT INFORMATION
  Report Type: Spontaneous
  Country: JP (occurrence: None)
  Receive Date: 20130628
  Receipt Date: 20130705
  Transmission Date: 20140515
  Serious: Yes (Death)
  Sender: FDA-Public Use
  Company Number: JP-012114

PATIENT
  Age: 84 Year
  Sex: Male
  Weight: 55 kg

DRUGS (3)
  1. GONAX [Suspect]
     Indication: PROSTATE CANCER
     Route: 058
     Dates: start: 20130509, end: 20130509
  2. ESTRACYT [Concomitant]
  3. ARICEPT [Concomitant]

REACTIONS (6)
  - Pneumothorax [None]
  - Respiratory failure [None]
  - Emphysema [None]
  - Condition aggravated [None]
  - Depressed level of consciousness [None]
  - Cardio-respiratory arrest [None]
